FAERS Safety Report 6194709-X (Version None)
Quarter: 2009Q2

REPORT INFORMATION
  Report Type: 
  Country: None (occurrence: None)
  Receive Date: 20090519
  Receipt Date: 20090507
  Transmission Date: 20091009
  Serious: Yes (Hospitalization)
  Sender: FDA-Public Use
  Company Number: US-AVENTIS-200913972US

PATIENT
  Age: 82 Year
  Sex: Male

DRUGS (1)
  1. LOVENOX [Suspect]
     Indication: THROMBOSIS PROPHYLAXIS
     Dates: start: 20090418, end: 20090421

REACTIONS (4)
  - ASTHENIA [None]
  - CONTUSION [None]
  - HAEMORRHAGE [None]
  - INFECTION [None]
